FAERS Safety Report 5619836-4 (Version None)
Quarter: 2008Q1

REPORT INFORMATION
  Report Type: 
  Country: None (occurrence: None)
  Receive Date: 20080208
  Receipt Date: 20080129
  Transmission Date: 20080703
  Serious: Yes (Hospitalization)
  Sender: FDA-Public Use
  Company Number: JP-JNJFOC-20080200750

PATIENT
  Sex: Female
  Weight: 66.2 kg

DRUGS (21)
  1. INFLIXIMAB, RECOMBINANT [Suspect]
     Route: 042
  2. INFLIXIMAB, RECOMBINANT [Suspect]
     Route: 042
  3. INFLIXIMAB, RECOMBINANT [Suspect]
     Route: 042
  4. INFLIXIMAB, RECOMBINANT [Suspect]
     Route: 042
  5. INFLIXIMAB, RECOMBINANT [Suspect]
     Route: 042
  6. INFLIXIMAB, RECOMBINANT [Suspect]
     Indication: PSORIASIS
     Route: 042
  7. KINDAVATE [Concomitant]
     Indication: PSORIASIS
     Route: 061
  8. ALLELOCK 5 [Concomitant]
     Indication: PSORIASIS
     Route: 048
  9. HIRUDOID [Concomitant]
     Route: 061
  10. AZUNOL 4% [Concomitant]
     Indication: GLOSSODYNIA
     Route: 061
  11. DEXALTIN [Concomitant]
     Indication: GLOSSODYNIA
     Route: 061
  12. SG GRANULES [Concomitant]
     Indication: HEADACHE
     Route: 048
  13. ALPRAZOLAM [Concomitant]
     Indication: INSOMNIA
     Route: 048
  14. NU-LOTAN [Concomitant]
     Indication: HYPERTENSION
     Route: 048
  15. NORVASC [Concomitant]
     Indication: HYPERTENSION
     Route: 048
  16. TATHION [Concomitant]
     Indication: HEPATIC FUNCTION ABNORMAL
  17. GLUCOSE [Concomitant]
  18. STRONG NEO-MINOPHAGEN C [Concomitant]
     Indication: HEPATIC FUNCTION ABNORMAL
  19. PRIMODIAN [Concomitant]
     Indication: MENOPAUSE
  20. PREMARIN [Concomitant]
     Indication: MENOPAUSE
     Route: 048
  21. BOTHERMON [Concomitant]
     Indication: MENOPAUSE

REACTIONS (1)
  - DIABETES MELLITUS [None]
